FAERS Safety Report 8215453-0 (Version None)
Quarter: 2012Q1

REPORT INFORMATION
  Report Type: 
  Country: None (occurrence: None)
  Receive Date: 20120316
  Receipt Date: 20120312
  Transmission Date: 20120608
  Serious: Yes (Hospitalization, Other)
  Sender: FDA-Public Use
  Company Number: US-PFIZER INC-2012029042

PATIENT
  Age: 17 Year
  Sex: Male

DRUGS (1)
  1. CLINDAMYCIN HCL [Suspect]
     Dosage: UNK
     Dates: start: 20080101

REACTIONS (4)
  - RECTAL PROLAPSE [None]
  - GASTROINTESTINAL SURGERY [None]
  - PSEUDOMEMBRANOUS COLITIS [None]
  - RENAL FAILURE [None]
